FAERS Safety Report 6073009-2 (Version None)
Quarter: 2009Q1

REPORT INFORMATION
  Report Type: 
  Country: None (occurrence: None)
  Receive Date: 20090209
  Receipt Date: 20090209
  Transmission Date: 20090719
  Serious: Yes (Hospitalization)
  Sender: FDA-Public Use
  Company Number: None

PATIENT
  Age: 61 Year
  Sex: Male

DRUGS (2)
  1. NORVIR [Suspect]
  2. PREZISTA [Suspect]

REACTIONS (2)
  - DIARRHOEA [None]
  - NAUSEA [None]
